FAERS Safety Report 12819945 (Version 5)
Quarter: 2017Q2

REPORT INFORMATION
  Report Type: Spontaneous
  Country: US (occurrence: US)
  Receive Date: 20161006
  Receipt Date: 20170606
  Transmission Date: 20170830
  Serious: Yes (Hospitalization, Other)
  Sender: FDA-Public Use
  Company Number: US-BAYER-2016-192880

PATIENT
  Age: 32 Year
  Sex: Female
  Weight: 52.16 kg

DRUGS (2)
  1. ETONOGESTREL [Concomitant]
     Active Substance: ETONOGESTREL
     Dosage: UNK
     Dates: start: 201501
  2. MIRENA [Suspect]
     Active Substance: LEVONORGESTREL
     Indication: CONTRACEPTION
     Dosage: 20 MCG/24HR, CONT
     Route: 015
     Dates: start: 20130325, end: 20150115

REACTIONS (8)
  - Drug ineffective [None]
  - Ovarian vein thrombosis [None]
  - Abortion missed [None]
  - Uterine perforation [None]
  - Device breakage [None]
  - Pelvic pain [None]
  - Pregnancy with contraceptive device [None]
  - Genital haemorrhage [None]

NARRATIVE: CASE EVENT DATE: 2014
